FAERS Safety Report 18110262 (Version 6)
Quarter: 2020Q3

REPORT INFORMATION
  Report Type: Spontaneous
  Country: US (occurrence: US)
  Receive Date: 20200804
  Receipt Date: 20200915
  Transmission Date: 20201103
  Serious: No
  Sender: FDA-Public Use
  Company Number: US-PFIZER INC-2020295158

PATIENT
  Age: 45 Year
  Sex: Female

DRUGS (5)
  1. IBRANCE [Suspect]
     Active Substance: PALBOCICLIB
     Dosage: 125 MG, 1X/DAY (RECEIVED AT NIGHT)
     Dates: start: 20200803, end: 202008
  2. IBRANCE [Suspect]
     Active Substance: PALBOCICLIB
     Dosage: 125 MG
     Dates: start: 20200810
  3. IBRANCE [Suspect]
     Active Substance: PALBOCICLIB
     Dosage: UNK
     Dates: start: 20200801, end: 202008
  4. IBRANCE [Suspect]
     Active Substance: PALBOCICLIB
     Dosage: 125 MG
     Dates: start: 20200802, end: 202008
  5. IBRANCE [Suspect]
     Active Substance: PALBOCICLIB
     Dosage: 125 MG
     Dates: start: 20200805, end: 202008

REACTIONS (6)
  - Feeling jittery [Unknown]
  - Stomatitis [Not Recovered/Not Resolved]
  - Alopecia [Unknown]
  - Throat irritation [Not Recovered/Not Resolved]
  - Fatigue [Recovering/Resolving]
  - Oral pain [Unknown]

NARRATIVE: CASE EVENT DATE: 2020
